FAERS Safety Report 6722344-0 (Version None)
Quarter: 2010Q2

REPORT INFORMATION
  Report Type: 
  Country: None (occurrence: None)
  Receive Date: 20100512
  Receipt Date: 20100507
  Transmission Date: 20101027
  Serious: Yes (Hospitalization)
  Sender: FDA-Public Use
  Company Number: US-BRISTOL-MYERS SQUIBB COMPANY-15084478

PATIENT
  Age: 58 Year
  Sex: Male

DRUGS (5)
  1. BLINDED: ABATACEPT [Suspect]
     Indication: RHEUMATOID ARTHRITIS
  2. BLINDED: ADALIMUMAB [Suspect]
     Indication: RHEUMATOID ARTHRITIS
  3. METHOTREXATE [Suspect]
     Indication: RHEUMATOID ARTHRITIS
     Dosage: 6 PILLS
     Route: 048
     Dates: start: 20081101
  4. MELOXICAM [Concomitant]
     Route: 048
     Dates: start: 20081101
  5. FOLIC ACID [Concomitant]
     Route: 048
     Dates: start: 20081101

REACTIONS (5)
  - ANAEMIA [None]
  - DIARRHOEA [None]
  - PYREXIA [None]
  - RHEUMATOID ARTHRITIS [None]
  - STOMATITIS [None]
